FAERS Safety Report 24322844 (Version 1)
Quarter: 2024Q3

REPORT INFORMATION
  Report Type: Other
  Country: US (occurrence: US)
  Receive Date: 20240916
  Receipt Date: 20240916
  Transmission Date: 20241016
  Serious: Yes (Death, Life-Threatening, Hospitalization, Other)
  Sender: EMD SERONO INC
  Company Number: US-Merck Healthcare KGaA-2024048562

PATIENT
  Age: 61 Year
  Sex: Female

DRUGS (4)
  1. METFORMIN [Suspect]
     Active Substance: METFORMIN HYDROCHLORIDE
     Indication: Diabetes mellitus
  2. IBUPROFEN [Suspect]
     Active Substance: IBUPROFEN
     Indication: Sciatica
  3. TYLENOL [Suspect]
     Active Substance: ACETAMINOPHEN
     Indication: Sciatica
  4. KETAMINE [Suspect]
     Active Substance: KETAMINE
     Indication: Back pain

REACTIONS (15)
  - Cardiac arrest [Fatal]
  - Brain injury [Fatal]
  - Metabolic alkalosis [Unknown]
  - Cardiogenic shock [Unknown]
  - Renal failure [Unknown]
  - Ketoacidosis [Unknown]
  - Metabolic acidosis [Unknown]
  - Lactic acidosis [Not Recovered/Not Resolved]
  - Toxicity to various agents [Unknown]
  - Hypoglycaemia [Recovering/Resolving]
  - Hypotension [Recovering/Resolving]
  - Blood glucose increased [Unknown]
  - Nausea [Unknown]
  - Vomiting [Unknown]
  - Contraindicated product administered [Unknown]
